FAERS Safety Report 17507676 (Version 2)
Quarter: 2021Q2

REPORT INFORMATION
  Report Type: Spontaneous
  Country: US (occurrence: US)
  Receive Date: 20200306
  Receipt Date: 20210503
  Transmission Date: 20210716
  Serious: No
  Sender: FDA-Public Use
  Company Number: US-009507513-2002USA008337

PATIENT
  Age: 59 Year
  Sex: Male

DRUGS (3)
  1. PRIMAXIN IV [Suspect]
     Active Substance: CILASTATIN SODIUM\IMIPENEM
     Indication: CAMPYLOBACTER INFECTION
     Dosage: 500?500 MG FOR EVERY 6 HOURS
     Route: 042
  2. DOXYCYCLINE. [Concomitant]
     Active Substance: DOXYCYCLINE
     Indication: HELICOBACTER INFECTION
     Dosage: 100 MILLIGRAM, Q12H
  3. DOXYCYCLINE. [Concomitant]
     Active Substance: DOXYCYCLINE
     Indication: CAMPYLOBACTER INFECTION

REACTIONS (1)
  - Off label use [Unknown]
